FAERS Safety Report 7764316-3 (Version None)
Quarter: 2011Q3

REPORT INFORMATION
  Report Type: 
  Country: None (occurrence: None)
  Receive Date: 20110921
  Receipt Date: 20110919
  Transmission Date: 20111222
  Serious: Yes (Hospitalization)
  Sender: FDA-Public Use
  Company Number: AU-BRISTOL-MYERS SQUIBB COMPANY-15770324

PATIENT
  Age: 77 Year
  Sex: Female
  Weight: 74 kg

DRUGS (9)
  1. VAGIFEM [Concomitant]
  2. SAXAGLIPTIN [Suspect]
     Indication: TYPE 2 DIABETES MELLITUS
     Dates: start: 20110420, end: 20110516
  3. MICARDIS [Concomitant]
  4. CARDIZEM [Concomitant]
  5. LIPITOR [Concomitant]
  6. SERC [Concomitant]
  7. OSTENIL [Concomitant]
  8. ZOLEDRONOC ACID [Concomitant]
  9. LANSOPRAZOLE [Concomitant]

REACTIONS (2)
  - HEPATITIS [None]
  - LIPASE INCREASED [None]
